FAERS Safety Report 8812075 (Version 1)
Quarter: 2012Q4

REPORT INFORMATION
  Report Type: 
  Country: IL (occurrence: IL)
  Receive Date: 20120927
  Receipt Date: 20120927
  Transmission Date: 20130627
  Serious: Yes (Other)
  Sender: FDA-Public Use
  Company Number: IL-PFIZER INC-2012233703

PATIENT
  Age: 50 Year
  Sex: Female

DRUGS (2)
  1. GEODON [Suspect]
     Indication: MAJOR DEPRESSION
     Dosage: 80 mg, 2x/day
     Route: 048
  2. CYMBALTA [Concomitant]

REACTIONS (5)
  - Parkinson^s disease [Unknown]
  - Tardive dyskinesia [Recovering/Resolving]
  - Tremor [Recovering/Resolving]
  - Muscle rigidity [Recovering/Resolving]
  - Mental disorder [Not Recovered/Not Resolved]
